FAERS Safety Report 10083516 (Version 1)
Quarter: 2014Q2

REPORT INFORMATION
  Report Type: Spontaneous
  Country: CA (occurrence: CA)
  Receive Date: 20140417
  Receipt Date: 20140417
  Transmission Date: 20141212
  Serious: Yes (Hospitalization)
  Sender: FDA-Public Use
  Company Number: CA-ROCHE-1378431

PATIENT
  Age: 60 Year
  Sex: Female

DRUGS (5)
  1. HERCEPTIN [Suspect]
     Indication: PRODUCT USED FOR UNKNOWN INDICATION
     Dosage: THERAPY DURATION: 1.0 DAYS
     Route: 042
  2. CISPLATIN [Suspect]
     Indication: PRODUCT USED FOR UNKNOWN INDICATION
     Dosage: THERAPY DURATION: 41.0 DAYS
     Route: 042
  3. DOCETAXEL [Suspect]
     Indication: PRODUCT USED FOR UNKNOWN INDICATION
     Dosage: THERAPY DURATION: 83 DAYS
     Route: 042
  4. CARBOPLATIN [Suspect]
     Indication: PRODUCT USED FOR UNKNOWN INDICATION
     Route: 042
  5. CARBOPLATIN [Suspect]
     Dosage: DOSE INCREASED
     Route: 042

REACTIONS (14)
  - Acoustic stimulation tests abnormal [Unknown]
  - Areflexia [Unknown]
  - Asthenia [Unknown]
  - Ataxia [Unknown]
  - Diarrhoea [Unknown]
  - Febrile neutropenia [Unknown]
  - Gait disturbance [Unknown]
  - Headache [Unknown]
  - Memory impairment [Unknown]
  - Nausea [Unknown]
  - Neuromyopathy [Unknown]
  - Neuropathy peripheral [Unknown]
  - Speech disorder [Unknown]
  - Vomiting [Unknown]
